FAERS Safety Report 8262330-5 (Version None)
Quarter: 2012Q1

REPORT INFORMATION
  Report Type: 
  Country: None (occurrence: None)
  Receive Date: 20120327
  Receipt Date: 20090508
  Transmission Date: 20120608
  Serious: Yes (Other)
  Sender: FDA-Public Use
  Company Number: PHEH2009US04369

PATIENT
  Age: 54 Year
  Sex: Female

DRUGS (6)
  1. SPRYCEL [Concomitant]
  2. GLEEVEC [Suspect]
     Indication: CHRONIC MYELOID LEUKAEMIA
     Dosage: 400 MG, QD, ORAL ; 600 MG, QD, ORAL ; 800 MG, QD, ORAL ; 600 MG, QD, ORAL ; 600 MG, QD, ORAL
     Route: 048
     Dates: start: 20011226
  3. GLEEVEC [Suspect]
     Indication: CHRONIC MYELOID LEUKAEMIA
     Dosage: 400 MG, QD, ORAL ; 600 MG, QD, ORAL ; 800 MG, QD, ORAL ; 600 MG, QD, ORAL ; 600 MG, QD, ORAL
     Route: 048
     Dates: end: 20020101
  4. GLEEVEC [Suspect]
     Indication: CHRONIC MYELOID LEUKAEMIA
     Dosage: 400 MG, QD, ORAL ; 600 MG, QD, ORAL ; 800 MG, QD, ORAL ; 600 MG, QD, ORAL ; 600 MG, QD, ORAL
     Route: 048
     Dates: start: 20020101
  5. GLEEVEC [Suspect]
     Indication: CHRONIC MYELOID LEUKAEMIA
     Dosage: 400 MG, QD, ORAL ; 600 MG, QD, ORAL ; 800 MG, QD, ORAL ; 600 MG, QD, ORAL ; 600 MG, QD, ORAL
     Route: 048
     Dates: start: 20070419, end: 20081214
  6. CYTARABINE [Concomitant]

REACTIONS (4)
  - DISEASE PROGRESSION [None]
  - DRUG INEFFECTIVE [None]
  - DRUG RESISTANCE [None]
  - POLYMERASE CHAIN REACTION [None]
